FAERS Safety Report 11265000 (Version 4)
Quarter: 2015Q3

REPORT INFORMATION
  Report Type: Spontaneous
  Country: IL (occurrence: IL)
  Receive Date: 20150713
  Receipt Date: 20150914
  Transmission Date: 20151125
  Serious: Yes (Other)
  Sender: FDA-Public Use
  Company Number: IL-PFIZER INC-2014315619

PATIENT
  Age: 66 Year
  Sex: Female

DRUGS (8)
  1. SUTENT [Suspect]
     Active Substance: SUNITINIB MALATE
     Dosage: 37.5 MG, 1X/DAY, 4 WEEKS CONSEQUITIVELY
     Route: 048
  2. OSMO-ADALAT [Concomitant]
  3. SUTENT [Suspect]
     Active Substance: SUNITINIB MALATE
     Dosage: 4 WEEKS CONSEQUITIVELY
     Dates: start: 20150809
  4. CALCIUM FOLINATE [Concomitant]
     Active Substance: LEUCOVORIN CALCIUM
  5. VITAMIN D [Concomitant]
     Active Substance: CHOLECALCIFEROL
  6. SUTENT [Suspect]
     Active Substance: SUNITINIB MALATE
     Indication: RENAL CELL CARCINOMA
     Dosage: 50 MG, CYCLIC (1X/DAY), CYCLE 1, CUMULATIVE 700
     Route: 048
     Dates: start: 20141105, end: 201411
  7. SUTENT [Suspect]
     Active Substance: SUNITINIB MALATE
     Dosage: 25 MG, UNK
     Route: 048
     Dates: start: 201411, end: 201411
  8. SUTENT [Suspect]
     Active Substance: SUNITINIB MALATE
     Dosage: 37.5 MG, 2 WKS ON 1 WK OFF, CUMULATIVE DOSE HARD TO ESTIMATE
     Route: 048
     Dates: start: 2014, end: 20150428

REACTIONS (29)
  - Metastatic pain [Not Recovered/Not Resolved]
  - Diarrhoea [Recovering/Resolving]
  - Skin exfoliation [Recovering/Resolving]
  - Hyperkeratosis [Not Recovered/Not Resolved]
  - Alopecia [Unknown]
  - Dyspepsia [Unknown]
  - Asthenia [Unknown]
  - Disease progression [Not Recovered/Not Resolved]
  - Palmar-plantar erythrodysaesthesia syndrome [Not Recovered/Not Resolved]
  - Gingival pain [Not Recovered/Not Resolved]
  - Renal cell carcinoma [Not Recovered/Not Resolved]
  - Neutropenia [Unknown]
  - Decreased appetite [Recovering/Resolving]
  - Headache [Recovered/Resolved]
  - Swelling face [Recovering/Resolving]
  - Erythema [Unknown]
  - Dysphagia [Unknown]
  - Blood pressure increased [Not Recovered/Not Resolved]
  - Lacrimation increased [Recovering/Resolving]
  - Nausea [Recovering/Resolving]
  - Pain in extremity [Not Recovered/Not Resolved]
  - Dry skin [Unknown]
  - Malaise [Unknown]
  - Vomiting [Recovering/Resolving]
  - Abdominal pain [Recovered/Resolved]
  - Oral pain [Unknown]
  - Pain of skin [Recovering/Resolving]
  - Hyperaesthesia [Unknown]
  - Blood thyroid stimulating hormone increased [Unknown]

NARRATIVE: CASE EVENT DATE: 2014
